FAERS Safety Report 5518264-X (Version None)
Quarter: 2007Q4

REPORT INFORMATION
  Report Type: 
  Country: None (occurrence: None)
  Receive Date: 20071115
  Receipt Date: 20071113
  Transmission Date: 20080405
  Serious: Yes (Hospitalization)
  Sender: FDA-Public Use
  Company Number: B0493309A

PATIENT
  Sex: Female
  Weight: 55 kg

DRUGS (2)
  1. ARIXTRA [Suspect]
     Indication: PHLEBITIS
     Dosage: 7.5MG PER DAY
     Route: 058
     Dates: start: 20070101
  2. SOLU-MEDROL [Concomitant]

REACTIONS (2)
  - HAEMATOMA [None]
  - NERVOUS SYSTEM DISORDER [None]
